FAERS Safety Report 6715096-1 (Version None)
Quarter: 2010Q2

REPORT INFORMATION
  Report Type: 
  Country: None (occurrence: None)
  Receive Date: 20100507
  Receipt Date: 20100428
  Transmission Date: 20101027
  Serious: Yes (Other)
  Sender: FDA-Public Use
  Company Number: UY-JNJFOC-20100501354

PATIENT
  Age: 15 Year
  Sex: Male

DRUGS (2)
  1. CONCERTA [Suspect]
     Indication: DRUG USE FOR UNKNOWN INDICATION
     Route: 065
  2. CONCERTA [Suspect]
     Dosage: DURING 6 YEARS
     Route: 065

REACTIONS (2)
  - CHEST PAIN [None]
  - LOSS OF CONSCIOUSNESS [None]
